FAERS Safety Report 15609517 (Version 8)
Quarter: 2019Q2

REPORT INFORMATION
  Report Type: Report from Study
  Country: BR (occurrence: BR)
  Receive Date: 20181112
  Receipt Date: 20190522
  Transmission Date: 20190711
  Serious: Yes (Death, Hospitalization, Disabling)
  Sender: FDA-Public Use
  Company Number: PHHO2018BR007346

PATIENT
  Age: 78 Year
  Sex: Female
  Weight: 42 kg

DRUGS (7)
  1. ACZ885 [Suspect]
     Active Substance: CANAKINUMAB
     Indication: CARDIOVASCULAR EVENT PROPHYLAXIS
     Dosage: 150 UG/ML, Q3MO
     Route: 058
     Dates: start: 20171005, end: 20180410
  2. PLACEBO [Suspect]
     Active Substance: UNSPECIFIED INGREDIENT
     Indication: CARDIOVASCULAR EVENT PROPHYLAXIS
     Dosage: UNK
     Route: 058
     Dates: start: 20170720
  3. DIGOXIN. [Concomitant]
     Active Substance: DIGOXIN
     Indication: CARDIAC FAILURE
     Dosage: 0.23 MG, UNK
     Route: 065
     Dates: start: 2013, end: 20180607
  4. FUROSEMIDE. [Concomitant]
     Active Substance: FUROSEMIDE
     Indication: HYPERTENSION
     Dosage: 40 MG
     Route: 048
     Dates: start: 2013, end: 20180607
  5. SIMVASTATIN. [Concomitant]
     Active Substance: SIMVASTATIN
     Indication: HYPERTENSION
     Dosage: 40 MG
     Route: 065
     Dates: start: 2013, end: 20180607
  6. AAS [Concomitant]
     Active Substance: ASPIRIN
     Indication: STENT PLACEMENT
     Dosage: 100 MG
     Route: 048
     Dates: start: 2013
  7. CARVEDILOL. [Concomitant]
     Active Substance: CARVEDILOL
     Indication: HYPERTENSION
     Dosage: 6.25 MG
     Route: 065
     Dates: start: 2013, end: 20180612

REACTIONS (7)
  - Respiratory distress [Recovered/Resolved]
  - Respiratory failure [Fatal]
  - Pneumonia [Fatal]
  - Cardiogenic shock [Recovered/Resolved]
  - Acute pulmonary oedema [Recovered/Resolved]
  - Chronic kidney disease [Not Recovered/Not Resolved]
  - Hepatic failure [Fatal]

NARRATIVE: CASE EVENT DATE: 20180607
